FAERS Safety Report 5393121-0 (Version None)
Quarter: 2007Q3

REPORT INFORMATION
  Report Type: 
  Country: None (occurrence: None)
  Receive Date: 20070719
  Receipt Date: 20070709
  Transmission Date: 20080115
  Serious: Yes (Death)
  Sender: FDA-Public Use
  Company Number: 2007-03224

PATIENT
  Age: 49 Year
  Sex: Male

DRUGS (1)
  1. LISINOPRIL AND HYDROCHLOROTHIAZIDE [Suspect]
     Indication: HYPERTENSION
     Dosage: 1 TABLET, DAILY; ORAL
     Route: 048
     Dates: start: 20041201, end: 20051201

REACTIONS (1)
  - PANCREATITIS NECROTISING [None]
